FAERS Safety Report 20803459 (Version 1)
Quarter: 2022Q2

REPORT INFORMATION
  Report Type: Report from Study
  Country: US (occurrence: US)
  Receive Date: 20220509
  Receipt Date: 20220509
  Transmission Date: 20220721
  Serious: Yes (Death, Hospitalization)
  Sender: FDA-Public Use
  Company Number: US-NOVARTISPH-NVSC2022US066019

PATIENT
  Age: 44 Year
  Sex: Female
  Weight: 43 kg

DRUGS (2)
  1. LAMPRENE [Suspect]
     Active Substance: CLOFAZIMINE
     Indication: Atypical mycobacterial infection
     Dosage: 100 MG
     Route: 048
     Dates: start: 20211212
  2. LAMPRENE [Suspect]
     Active Substance: CLOFAZIMINE
     Dosage: 100 MG
     Route: 048
     Dates: start: 20220317

REACTIONS (9)
  - Multiple organ dysfunction syndrome [Fatal]
  - Concomitant disease aggravated [Fatal]
  - Electrocardiogram QT prolonged [Fatal]
  - Skin discolouration [Fatal]
  - Lupus nephritis [Fatal]
  - Acute kidney injury [Unknown]
  - Acidosis [Unknown]
  - Diarrhoea [Unknown]
  - Weight decreased [Unknown]

NARRATIVE: CASE EVENT DATE: 20220128
